FAERS Safety Report 4520149-2 (Version None)
Quarter: 2004Q4

REPORT INFORMATION
  Report Type: 
  Country: None (occurrence: None)
  Receive Date: 20041207
  Receipt Date: 20040902
  Transmission Date: 20050328
  Serious: Yes (Other)
  Sender: FDA-Public Use
  Company Number: PHBS2004JP11806

PATIENT
  Age: 33 Year
  Sex: Female
  Weight: 67 kg

DRUGS (7)
  1. APRESOLINE [Suspect]
     Indication: PREGNANCY INDUCED HYPERTENSION
     Dosage: 30 MG/DAY
     Route: 048
     Dates: start: 20040826, end: 20040829
  2. APRESOLINE [Suspect]
     Dosage: 50 MG/DAY
     Route: 048
     Dates: start: 20040830, end: 20040830
  3. APRESOLINE [Suspect]
     Dosage: 60 MG/DAY
     Route: 048
     Dates: start: 20040831, end: 20040902
  4. UTEMERIN [Concomitant]
     Dosage: 40 TO 30 MG/DAY
     Route: 048
     Dates: start: 20040611, end: 20040902
  5. RINDERON [Suspect]
     Dosage: 12 MG/DAY
     Route: 030
     Dates: start: 20040830, end: 20040831
  6. RINDERON [Suspect]
     Dosage: 60 MG/DAY
  7. FERROMIA [Concomitant]
     Indication: ANAEMIA
     Dosage: 100 MG/DAY
     Route: 048
     Dates: start: 20040825, end: 20040902

REACTIONS (11)
  - ALANINE AMINOTRANSFERASE INCREASED [None]
  - ASPARTATE AMINOTRANSFERASE INCREASED [None]
  - BLOOD URIC ACID INCREASED [None]
  - CAESAREAN SECTION [None]
  - CONDITION AGGRAVATED [None]
  - DRUG EXPOSURE DURING PREGNANCY [None]
  - HEPATIC FUNCTION ABNORMAL [None]
  - PLACENTA PRAEVIA [None]
  - PRE-ECLAMPSIA [None]
  - PROTEINURIA [None]
  - WEIGHT INCREASED [None]
